FAERS Safety Report 6660476-6 (Version None)
Quarter: 2010Q1

REPORT INFORMATION
  Report Type: 
  Country: None (occurrence: None)
  Receive Date: 20100331
  Receipt Date: 20100329
  Transmission Date: 20100710
  Serious: Yes (Other)
  Sender: FDA-Public Use
  Company Number: JP-SANOFI-AVENTIS-2010SA015746

PATIENT
  Age: 3 Year
  Sex: Male

DRUGS (3)
  1. CLAFORAN [Suspect]
     Indication: BRAIN ABSCESS
  2. VANCOMYCIN HYDROCHLORIDE [Suspect]
     Indication: BRAIN ABSCESS
  3. METRONIDAZOLE [Concomitant]
     Indication: BRAIN ABSCESS
     Route: 048

REACTIONS (1)
  - PANCYTOPENIA [None]
